FAERS Safety Report 25981559 (Version 1)
Quarter: 2025Q4

REPORT INFORMATION
  Report Type: Spontaneous
  Country: EU (occurrence: EU)
  Receive Date: 20251030
  Receipt Date: 20251030
  Transmission Date: 20260118
  Serious: Yes (Hospitalization)
  Sender: JOHNSON AND JOHNSON
  Company Number: None

PATIENT
  Age: 52 Year
  Sex: Female

DRUGS (6)
  1. XARELTO [Suspect]
     Active Substance: RIVAROXABAN
     Indication: Ischaemic cardiomyopathy
     Dosage: 1 DF, QD
     Route: 048
     Dates: end: 20250523
  2. FENTANYL [Suspect]
     Active Substance: FENTANYL
     Indication: Pain
     Dosage: 1 DF
     Route: 062
     Dates: end: 20250523
  3. TRIMEPRAZINE [Suspect]
     Active Substance: TRIMEPRAZINE
     Indication: Pain
     Dosage: 20 DROP, QD
     Route: 048
     Dates: end: 20250523
  4. OXAZEPAM [Suspect]
     Active Substance: OXAZEPAM
     Indication: Pain
     Dosage: 1 DF, QD
     Route: 048
     Dates: end: 20250523
  5. LYRICA [Suspect]
     Active Substance: PREGABALIN
     Indication: Pain
     Dosage: 2 DF, QD
     Route: 048
     Dates: end: 20250523
  6. PLAVIX [Suspect]
     Active Substance: CLOPIDOGREL BISULFATE
     Indication: Ischaemic cardiomyopathy
     Dosage: 1 DF, QD
     Route: 048
     Dates: end: 20250430

REACTIONS (3)
  - Gastrointestinal haemorrhage [Recovered/Resolved]
  - Disturbance in attention [Recovered/Resolved]
  - Altered state of consciousness [Recovered/Resolved]

NARRATIVE: CASE EVENT DATE: 20250401
